FAERS Safety Report 4596547-8 (Version None)
Quarter: 2005Q1

REPORT INFORMATION
  Report Type: 
  Country: None (occurrence: None)
  Receive Date: 20050228
  Receipt Date: 20050211
  Transmission Date: 20050727
  Serious: Yes (Hospitalization)
  Sender: FDA-Public Use
  Company Number: 04UK 0010

PATIENT
  Age: 60 Year
  Sex: Male
  Weight: 100 kg

DRUGS (1)
  1. GLIADEL [Suspect]
     Indication: ANAPLASTIC ASTROCYTOMA
     Dosage: 61.6 MG (7.7 MG, 8 IN 1 ONCE), IMPLANT
     Dates: start: 20040113, end: 20040315

REACTIONS (4)
  - BRAIN OEDEMA [None]
  - MEDICAL DEVICE REMOVAL [None]
  - NECROSIS [None]
  - RADIATION INJURY [None]
